FAERS Safety Report 9833494 (Version 1)
Quarter: 2014Q1

REPORT INFORMATION
  Report Type: Spontaneous
  Country: US (occurrence: US)
  Receive Date: 20140122
  Receipt Date: 20140122
  Transmission Date: 20141002
  Serious: Yes (Hospitalization)
  Sender: FDA-Public Use
  Company Number: US-EMCURE-000723

PATIENT
  Sex: Male

DRUGS (5)
  1. BCNU [Suspect]
     Indication: PRODUCT USED FOR UNKNOWN INDICATION
  2. ADCETRIS [Suspect]
     Indication: T-CELL LYMPHOMA
  3. MELPHALAN [Concomitant]
  4. CYTARABINE/CYTARABINE HYDROCHLORIDE/CYTARABINE OCFOSFATE [Concomitant]
  5. ETOPOSIDE [Concomitant]

REACTIONS (1)
  - Pneumonitis [Unknown]
